FAERS Safety Report 5646521-5 (Version None)
Quarter: 2008Q1

REPORT INFORMATION
  Report Type: 
  Country: None (occurrence: None)
  Receive Date: 20080227
  Receipt Date: 20080221
  Transmission Date: 20080703
  Serious: Yes (Death, Hospitalization)
  Sender: FDA-Public Use
  Company Number: 2007SP024661

PATIENT
  Age: 75 Year
  Sex: Female

DRUGS (9)
  1. TEMOZOLOMIDE [Suspect]
     Indication: GLIOBLASTOMA MULTIFORME
     Dosage: 350 MG
     Dates: start: 20070917, end: 20071116
  2. DOXORUBICIN HCL [Suspect]
     Indication: GLIOBLASTOMA MULTIFORME
     Dosage: 69 MG; ONCE; IV
     Route: 042
     Dates: start: 20070917, end: 20071112
  3. DEXAMETHASONE TAB [Suspect]
     Indication: GLIOBLASTOMA MULTIFORME
     Dosage: 4 MG; QD; PO
     Route: 048
     Dates: start: 20070928, end: 20071211
  4. KEPPRA (CON.) [Concomitant]
  5. ATORVASTATIN (CON.) [Concomitant]
  6. RABEPRAZOLE (CON.) [Concomitant]
  7. PERINDOPRIL (CON.) [Concomitant]
  8. ZANTAC /00550801(CON.) [Concomitant]
  9. ACICLOVIR (CON.) [Concomitant]

REACTIONS (1)
  - PNEUMOCYSTIS JIROVECI PNEUMONIA [None]
